FAERS Safety Report 12079094 (Version 2)
Quarter: 2016Q1

REPORT INFORMATION
  Report Type: Spontaneous
  Country: US (occurrence: US)
  Receive Date: 20160216
  Receipt Date: 20160316
  Transmission Date: 20160526
  Serious: No
  Sender: FDA-Public Use
  Company Number: US-PFIZER INC-2016056961

PATIENT
  Age: 72 Year
  Sex: Male
  Weight: 86.18 kg

DRUGS (10)
  1. SIMVASTATIN. [Concomitant]
     Active Substance: SIMVASTATIN
     Indication: BLOOD CHOLESTEROL INCREASED
     Dosage: 80 MG, 1X/DAY
     Route: 048
  2. LISINOPRIL. [Concomitant]
     Active Substance: LISINOPRIL
     Indication: HYPERTENSION
     Dosage: 10 MG, 2X/DAY
     Route: 048
  3. LYRICA [Suspect]
     Active Substance: PREGABALIN
     Indication: BURNING SENSATION
     Dosage: 150 MG, 2X/DAY
     Route: 048
     Dates: start: 20160216
  4. LYRICA [Suspect]
     Active Substance: PREGABALIN
     Indication: PAIN IN EXTREMITY
  5. VIMOVO [Concomitant]
     Active Substance: ESOMEPRAZOLE MAGNESIUM\NAPROXEN
     Indication: PAIN
     Dosage: 1 DF ([NAPROXEN, 500 MG]/[ESOMEPRAZOLE, 20 MG]), 2X/DAY
     Route: 048
  6. ACETAMINOPHEN W/HYDROCODONE [Concomitant]
     Active Substance: ACETAMINOPHEN\HYDROCODONE
     Indication: PAIN
     Dosage: 1 DF ([HYDROCODONE, 10MG]/[ACETAMINOPHEN, 325MG] ), 4X/DAY
     Route: 048
  7. LYRICA [Suspect]
     Active Substance: PREGABALIN
     Indication: BACK DISORDER
     Dosage: 75 MG, 2X/DAY
     Route: 048
     Dates: start: 20160128
  8. JANUMET XR [Concomitant]
     Active Substance: METFORMIN HYDROCHLORIDE\SITAGLIPTIN PHOSPHATE
     Indication: DIABETES MELLITUS
     Dosage: 1 DF ([SITAGLIPTIN PHOSPHATE, 50MG]/[METFORMIN HCL, 1000MG]), 1X/DAY
     Route: 048
  9. CELEBREX [Concomitant]
     Active Substance: CELECOXIB
     Dosage: UNK
  10. LYRICA [Suspect]
     Active Substance: PREGABALIN
     Indication: NEUROPATHY PERIPHERAL
     Dosage: THREE PILLS OF 75 MG
     Route: 048

REACTIONS (6)
  - Intentional product use issue [Recovered/Resolved]
  - Dizziness [Recovered/Resolved]
  - Fatigue [Unknown]
  - Impaired driving ability [Recovered/Resolved]
  - Somnolence [Recovering/Resolving]
  - Drug ineffective [Recovered/Resolved]

NARRATIVE: CASE EVENT DATE: 20160201
